FAERS Safety Report 9769032 (Version 1)
Quarter: 2013Q4

REPORT INFORMATION
  Report Type: Spontaneous
  Country: US (occurrence: None)
  Receive Date: 20131216
  Receipt Date: 20131216
  Transmission Date: 20140711
  Serious: Yes (Death)
  Sender: FDA-Public Use
  Company Number: 2013P1021793

PATIENT
  Age: 78 Year
  Sex: Female

DRUGS (3)
  1. PREDNISONE [Suspect]
     Indication: RHEUMATOID ARTHRITIS
  2. METHOTREXATE [Suspect]
     Indication: RHEUMATOID ARTHRITIS
  3. CEFAZOLIN [Concomitant]

REACTIONS (9)
  - Clostridium difficile colitis [None]
  - Hypotension [None]
  - Tachycardia [None]
  - Mucosal dryness [None]
  - Septic shock [None]
  - Metabolic acidosis [None]
  - Renal failure acute [None]
  - General physical health deterioration [None]
  - Gastrointestinal necrosis [None]
